FAERS Safety Report 12094999 (Version 3)
Quarter: 2016Q3

REPORT INFORMATION
  Report Type: Spontaneous
  Country: US (occurrence: US)
  Receive Date: 20160219
  Receipt Date: 20160817
  Transmission Date: 20161109
  Serious: Yes (Death, Hospitalization)
  Sender: FDA-Public Use
  Company Number: US-JNJFOC-20160217407

PATIENT
  Age: 43 Year
  Sex: Female

DRUGS (4)
  1. XARELTO [Suspect]
     Active Substance: RIVAROXABAN
     Indication: PRODUCT USED FOR UNKNOWN INDICATION
     Dosage: 15MG ONE TABLET BY MOUTH TWICE A DAY, 20MG ONE TABLET BY MOUTH DAILY WITH DINNER
     Route: 065
     Dates: start: 20140401, end: 20140501
  2. XARELTO [Suspect]
     Active Substance: RIVAROXABAN
     Indication: PRODUCT USED FOR UNKNOWN INDICATION
     Route: 065
     Dates: start: 2013, end: 2014
  3. XARELTO [Suspect]
     Active Substance: RIVAROXABAN
     Indication: DEEP VEIN THROMBOSIS
     Route: 065
     Dates: start: 2013, end: 2014
  4. XARELTO [Suspect]
     Active Substance: RIVAROXABAN
     Indication: DEEP VEIN THROMBOSIS
     Dosage: 15MG ONE TABLET BY MOUTH TWICE A DAY, 20MG ONE TABLET BY MOUTH DAILY WITH DINNER
     Route: 065
     Dates: start: 20140401, end: 20140501

REACTIONS (4)
  - Death [Fatal]
  - Anaemia [Unknown]
  - Pleural effusion [Unknown]
  - Internal haemorrhage [Unknown]

NARRATIVE: CASE EVENT DATE: 20140401
